FAERS Safety Report 8747302 (Version 2)
Quarter: 2012Q4

REPORT INFORMATION
  Report Type: 
  Country: US (occurrence: US)
  Receive Date: 20120827
  Receipt Date: 20120925
  Transmission Date: 20130627
  Serious: Yes (Other)
  Sender: FDA-Public Use
  Company Number: US-PFIZER INC-2012206835

PATIENT
  Age: 46 Year
  Sex: Female

DRUGS (3)
  1. LYRICA [Suspect]
     Indication: PAIN
     Dosage: 75 mg, 3x/day
     Dates: start: 2007
  2. DILANTIN [Concomitant]
     Indication: PAIN
     Dosage: UNK
  3. FENTANYL [Concomitant]
     Indication: PAIN
     Dosage: UNK

REACTIONS (1)
  - Abasia [Not Recovered/Not Resolved]
